FAERS Safety Report 25547202 (Version 1)
Quarter: 2025Q3

REPORT INFORMATION
  Report Type: Spontaneous
  Country: US (occurrence: US)
  Receive Date: 20250714
  Receipt Date: 20250714
  Transmission Date: 20251020
  Serious: No
  Sender: BAUSCH AND LOMB
  Company Number: US-BAUSCHBL-2025BNL012322

PATIENT
  Sex: Female

DRUGS (1)
  1. ALAWAY [Suspect]
     Active Substance: KETOTIFEN FUMARATE
     Indication: Pruritus
     Route: 065

REACTIONS (1)
  - Therapeutic product effect incomplete [Unknown]
